FAERS Safety Report 25577064 (Version 1)
Quarter: 2025Q3

REPORT INFORMATION
  Report Type: Spontaneous
  Country: US (occurrence: US)
  Receive Date: 20250718
  Receipt Date: 20250718
  Transmission Date: 20251021
  Serious: No
  Sender: SPECGX
  Company Number: US-SPECGX-T202401722

PATIENT
  Age: 53 Year
  Sex: Female

DRUGS (2)
  1. ACETAMINOPHEN AND CODEINE [Suspect]
     Active Substance: ACETAMINOPHEN\CODEINE PHOSPHATE
     Indication: Back pain
     Route: 048
  2. ACETAMINOPHEN AND CODEINE [Suspect]
     Active Substance: ACETAMINOPHEN\CODEINE PHOSPHATE
     Indication: Pain in extremity
     Route: 048
     Dates: start: 20240807

REACTIONS (3)
  - Dysgeusia [Unknown]
  - Product taste abnormal [Unknown]
  - Drug ineffective [Unknown]

NARRATIVE: CASE EVENT DATE: 20240807
